FAERS Safety Report 9454494 (Version 1)
Quarter: 2013Q3

REPORT INFORMATION
  Report Type: Spontaneous
  Country: DE (occurrence: DE)
  Receive Date: 20130812
  Receipt Date: 20130812
  Transmission Date: 20140515
  Serious: Yes (Congenital Anomaly, Other)
  Sender: FDA-Public Use
  Company Number: DE-UCBSA-094259

PATIENT
  Sex: Male
  Weight: 2.84 kg

DRUGS (2)
  1. KEPPRA [Suspect]
     Indication: EPILEPSY
     Route: 064
     Dates: start: 20040213, end: 2004
  2. KEPPRA [Suspect]
     Indication: EPILEPSY
     Dosage: DOSE: 1000 MG/DAY
     Route: 063
     Dates: start: 20041105, end: 20041205

REACTIONS (5)
  - Atrial septal defect [Unknown]
  - Congenital arterial malformation [Unknown]
  - Feeding disorder neonatal [Recovered/Resolved]
  - Exposure during pregnancy [Recovered/Resolved]
  - Breast feeding [Unknown]
